FAERS Safety Report 24372974 (Version 1)
Quarter: 2024Q3

REPORT INFORMATION
  Report Type: Spontaneous
  Country: CO (occurrence: CO)
  Receive Date: 20240927
  Receipt Date: 20240927
  Transmission Date: 20241016
  Serious: Yes (Other)
  Sender: AUROBINDO
  Company Number: CO-AUROBINDO-AUR-APL-2024-046435

PATIENT
  Age: 61 Year
  Sex: Male

DRUGS (7)
  1. MEROPENEM [Suspect]
     Active Substance: MEROPENEM
     Indication: Antibiotic prophylaxis
     Dosage: UNK
     Route: 065
  2. VANCOMYCIN [Suspect]
     Active Substance: VANCOMYCIN
     Indication: Antibiotic prophylaxis
     Dosage: UNK
     Route: 065
  3. RIFAMPIN [Concomitant]
     Active Substance: RIFAMPIN
     Indication: Peritoneal tuberculosis
     Dosage: 150 MILLIGRAM
     Route: 065
  4. ISONIAZID [Concomitant]
     Active Substance: ISONIAZID
     Indication: Peritoneal tuberculosis
     Dosage: 75 MILLIGRAM
     Route: 065
  5. PYRAZINAMIDE [Concomitant]
     Active Substance: PYRAZINAMIDE
     Indication: Peritoneal tuberculosis
     Dosage: 400 MILLIGRAM
     Route: 065
  6. ETHAMBUTOL [Concomitant]
     Active Substance: ETHAMBUTOL HYDROCHLORIDE
     Indication: Peritoneal tuberculosis
     Dosage: 275 MILLIGRAM
     Route: 065
  7. PYRIDOXINE [Concomitant]
     Active Substance: PYRIDOXINE
     Indication: Peritoneal tuberculosis
     Dosage: 50 MILLIGRAM, ONCE A DAY
     Route: 065

REACTIONS (1)
  - Drug ineffective [Unknown]
